FAERS Safety Report 5925106-7 (Version None)
Quarter: 2008Q4

REPORT INFORMATION
  Report Type: 
  Country: None (occurrence: None)
  Receive Date: 20081021
  Receipt Date: 20081009
  Transmission Date: 20090506
  Serious: Yes (Hospitalization)
  Sender: FDA-Public Use
  Company Number: FR-AMGEN-US313761

PATIENT
  Sex: Female

DRUGS (7)
  1. ENBREL [Suspect]
     Indication: RHEUMATOID ARTHRITIS
     Route: 058
     Dates: end: 20080613
  2. METHOTREXATE [Suspect]
     Indication: RHEUMATOID ARTHRITIS
     Route: 048
     Dates: end: 20080613
  3. SPECIAFOLDINE [Concomitant]
     Indication: ENZYME SUPPLEMENTATION
     Dosage: 10 MG TOTAL DAILY
     Route: 048
     Dates: end: 20080613
  4. LEXOMIL [Concomitant]
     Route: 048
  5. DICLOFENAC [Concomitant]
     Indication: ANTIINFLAMMATORY THERAPY
     Dosage: 50 MG; ON REQUEST
     Route: 048
  6. DILTIAZEM HCL [Concomitant]
     Route: 048
  7. ACETAMINOPHEN [Concomitant]
     Indication: PAIN PROPHYLAXIS
     Dosage: 3 G TOTAL DAILY
     Route: 048

REACTIONS (10)
  - ABDOMINAL PAIN [None]
  - ARTHRITIS [None]
  - BACK PAIN [None]
  - INTERVERTEBRAL DISC DISORDER [None]
  - INTERVERTEBRAL DISCITIS [None]
  - NAUSEA [None]
  - PNEUMONIA STAPHYLOCOCCAL [None]
  - STAPHYLOCOCCAL SEPSIS [None]
  - URINARY TRACT INFECTION STAPHYLOCOCCAL [None]
  - VOMITING [None]
